FAERS Safety Report 8537618-0 (Version None)
Quarter: 2012Q3

REPORT INFORMATION
  Report Type: 
  Country: None (occurrence: None)
  Receive Date: 20120725
  Receipt Date: 20120717
  Transmission Date: 20120928
  Serious: Yes (Other)
  Sender: FDA-Public Use
  Company Number: US-ASTRAZENECA-2011SE06750

PATIENT
  Age: 56 Year
  Sex: Male

DRUGS (1)
  1. CRESTOR [Suspect]
     Route: 048

REACTIONS (9)
  - SKIN ULCER [None]
  - LOCALISED INFECTION [None]
  - BRONCHITIS CHRONIC [None]
  - HYPERTENSION [None]
  - DRUG DOSE OMISSION [None]
  - MALAISE [None]
  - DIABETES MELLITUS [None]
  - HERPES ZOSTER [None]
  - MYOCARDIAL INFARCTION [None]
